FAERS Safety Report 4682138-7 (Version None)
Quarter: 2005Q2

REPORT INFORMATION
  Report Type: 
  Country: None (occurrence: None)
  Receive Date: 20050602
  Receipt Date: 20040608
  Transmission Date: 20051028
  Serious: No
  Sender: FDA-Public Use
  Company Number: 0406-149

PATIENT
  Sex: Male

DRUGS (1)
  1. DUONEB [Suspect]
     Dosage: TID

REACTIONS (1)
  - PRURITUS [None]
